FAERS Safety Report 8953723 (Version 1)
Quarter: 2012Q4

REPORT INFORMATION
  Report Type: 
  Country: BR (occurrence: BR)
  Receive Date: 20121206
  Receipt Date: 20121206
  Transmission Date: 20130627
  Serious: Yes (Hospitalization)
  Sender: FDA-Public Use
  Company Number: BR-AMGEN-BRASP2012078452

PATIENT
  Age: 44 Year
  Sex: Female
  Weight: 74 kg

DRUGS (2)
  1. ENBREL [Suspect]
     Indication: RHEUMATOID ARTHRITIS
     Dosage: 50 mg, 1x/week
     Route: 058
     Dates: start: 201111, end: 20121003
  2. PREDNISONE [Concomitant]
     Dosage: 10 mg, 1x/day

REACTIONS (1)
  - Leukaemia recurrent [Unknown]
